FAERS Safety Report 17542374 (Version 4)
Quarter: 2020Q2

REPORT INFORMATION
  Report Type: Spontaneous
  Country: US (occurrence: US)
  Receive Date: 20200314
  Receipt Date: 20200406
  Transmission Date: 20200713
  Serious: Yes (Hospitalization, Other)
  Sender: FDA-Public Use
  Company Number: US-UNITED THERAPEUTICS-UNT-2020-003729

PATIENT
  Age: 60 Year
  Sex: Male
  Weight: 81.63 kg

DRUGS (6)
  1. ELIQUIS [Concomitant]
     Active Substance: APIXABAN
     Indication: PRODUCT USED FOR UNKNOWN INDICATION
     Dosage: UNK
     Route: 065
  2. REMODULIN [Suspect]
     Active Substance: TREPROSTINIL
     Dosage: 0.035 ?G/KG, CONTINUING
     Route: 041
  3. AMBRISENTAN [Concomitant]
     Active Substance: AMBRISENTAN
     Indication: PRODUCT USED FOR UNKNOWN INDICATION
     Dosage: UNK
     Route: 065
  4. REMODULIN [Suspect]
     Active Substance: TREPROSTINIL
     Indication: PULMONARY ARTERIAL HYPERTENSION
     Dosage: UNK (DECREASED DOSE), CONTINUING
     Route: 041
  5. REMODULIN [Suspect]
     Active Substance: TREPROSTINIL
     Dosage: 0.044 ?G/KG, CONTINUING
     Route: 041
     Dates: start: 20170727
  6. SILDENAFIL CITRATE. [Concomitant]
     Active Substance: SILDENAFIL CITRATE
     Indication: PRODUCT USED FOR UNKNOWN INDICATION
     Dosage: UNK
     Route: 065

REACTIONS (20)
  - Fluid retention [Unknown]
  - Pulmonary arterial hypertension [Unknown]
  - Dyspnoea exertional [Unknown]
  - Cough [Unknown]
  - Chronic obstructive pulmonary disease [Unknown]
  - Feeling abnormal [Unknown]
  - Withdrawal syndrome [Unknown]
  - Bone pain [Unknown]
  - Weight increased [Unknown]
  - Dyspnoea [Unknown]
  - Patient uncooperative [Unknown]
  - Fatigue [Unknown]
  - Loss of consciousness [Unknown]
  - Gait disturbance [Unknown]
  - General physical health deterioration [Unknown]
  - Vascular device infection [Unknown]
  - Dizziness [Unknown]
  - Syncope [Unknown]
  - Insomnia [Unknown]
  - Chest pain [Unknown]

NARRATIVE: CASE EVENT DATE: 202003
